FAERS Safety Report 5323836-1 (Version None)
Quarter: 2007Q2

REPORT INFORMATION
  Report Type: 
  Country: None (occurrence: None)
  Receive Date: 20070514
  Receipt Date: 20070510
  Transmission Date: 20071010
  Serious: Yes (Life-Threatening, Hospitalization)
  Sender: FDA-Public Use
  Company Number: B0470391A

PATIENT
  Age: 60 Year
  Sex: Female

DRUGS (5)
  1. AUGMENTIN '125' [Suspect]
     Indication: ACUTE TONSILLITIS
     Dosage: 1.5G THREE TIMES PER DAY
     Route: 048
     Dates: start: 20070202, end: 20070215
  2. PROGRAF [Suspect]
     Indication: LIVER TRANSPLANT
     Dosage: 1MCG PER DAY
     Route: 065
     Dates: start: 20060220, end: 20070222
  3. MYCOPHENOLIC ACID [Suspect]
     Indication: LIVER TRANSPLANT
     Dosage: 500MG PER DAY
     Route: 065
     Dates: start: 20060220, end: 20070222
  4. DOXAZOSIN MESYLATE [Suspect]
     Indication: ESSENTIAL HYPERTENSION
     Route: 048
  5. SEPTRIN [Suspect]
     Indication: LIVER TRANSPLANT
     Route: 048
     Dates: start: 20060220

REACTIONS (6)
  - ASCITES [None]
  - FIBROSIS [None]
  - HEPATIC CIRRHOSIS [None]
  - HEPATITIS C [None]
  - HEPATITIS CHOLESTATIC [None]
  - LIVER TRANSPLANT REJECTION [None]
